FAERS Safety Report 5798172-X (Version None)
Quarter: 2008Q3

REPORT INFORMATION
  Report Type: 
  Country: None (occurrence: None)
  Receive Date: 20080702
  Receipt Date: 20080623
  Transmission Date: 20090109
  Serious: Yes (Death, Hospitalization)
  Sender: FDA-Public Use
  Company Number: A0732023A

PATIENT
  Age: 57 Year
  Sex: Female

DRUGS (2)
  1. LAPATINIB [Suspect]
     Dosage: 1250MG PER DAY
     Route: 048
     Dates: start: 20060908, end: 20061027
  2. CAPECITABINE [Suspect]
     Dosage: 1500MG CYCLIC
     Route: 048
     Dates: start: 20060908, end: 20061012

REACTIONS (4)
  - ANOREXIA [None]
  - ASTHENIA [None]
  - FAILURE TO THRIVE [None]
  - STOMATITIS [None]
